FAERS Safety Report 7503201-9 (Version None)
Quarter: 2011Q2

REPORT INFORMATION
  Report Type: 
  Country: None (occurrence: None)
  Receive Date: 20110518
  Receipt Date: 20110504
  Transmission Date: 20111010
  Serious: Yes (Other)
  Sender: FDA-Public Use
  Company Number: US-1186151

PATIENT
  Sex: Female

DRUGS (1)
  1. DUREZOL [Suspect]
     Indication: UVEITIS
     Dosage: (OPHTHALMIC)
     Route: 047
     Dates: start: 20110404

REACTIONS (2)
  - HEADACHE [None]
  - INTRAOCULAR PRESSURE INCREASED [None]
